FAERS Safety Report 19884822 (Version 1)
Quarter: 2021Q3

REPORT INFORMATION
  Report Type: Spontaneous
  Country: US (occurrence: US)
  Receive Date: 20210923
  Receipt Date: 20210923
  Transmission Date: 20211014
  Serious: Yes (Death)
  Sender: FDA-Public Use
  Company Number: None

PATIENT
  Age: 63 Year
  Sex: Female

DRUGS (2)
  1. TACROLIMUS 0.5 MG [Suspect]
     Active Substance: TACROLIMUS
     Route: 048
     Dates: start: 20200228
  2. MYCOPHENOLATE 250 MG [Suspect]
     Active Substance: MYCOPHENOLIC ACID
     Route: 048
     Dates: start: 20200228

REACTIONS (1)
  - Death [None]
